FAERS Safety Report 6610066-6 (Version None)
Quarter: 2010Q1

REPORT INFORMATION
  Report Type: 
  Country: None (occurrence: None)
  Receive Date: 20100217
  Receipt Date: 20090109
  Transmission Date: 20100710
  Serious: Yes (Other)
  Sender: FDA-Public Use
  Company Number: WAES 0805USA00434

PATIENT
  Age: 50 Year
  Sex: Male

DRUGS (7)
  1. FOSAMAX PLUS D [Suspect]
     Indication: BONE DENSITY DECREASED
     Dosage: PO
     Route: 048
     Dates: start: 20051201, end: 20070101
  2. FOSAMAX PLUS D [Suspect]
     Indication: OSTEOPOROSIS
     Dosage: PO
     Route: 048
     Dates: start: 20051201, end: 20070101
  3. FOSAMAX [Suspect]
  4. PROVENTIL GENTLEHALER [Concomitant]
  5. VALIUM [Concomitant]
  6. THERAPY UNSPECIFIED [Concomitant]
  7. HORMONES UNSPECIFIED [Concomitant]

REACTIONS (9)
  - ANGIOPATHY [None]
  - ANXIETY [None]
  - CHRONIC OBSTRUCTIVE PULMONARY DISEASE [None]
  - DEPRESSION [None]
  - EXOSTOSIS [None]
  - FEAR [None]
  - FRUSTRATION [None]
  - IMPAIRED HEALING [None]
  - OSTEONECROSIS [None]
